FAERS Safety Report 8041137-8 (Version None)
Quarter: 2012Q1

REPORT INFORMATION
  Report Type: 
  Country: None (occurrence: None)
  Receive Date: 20120109
  Receipt Date: 20111227
  Transmission Date: 20120608
  Serious: Yes (Hospitalization, Other)
  Sender: FDA-Public Use
  Company Number: 2011P1015562

PATIENT
  Age: 49 Year
  Sex: Female

DRUGS (1)
  1. LIDOCAINE [Suspect]
     Indication: DRUG ADMINISTRATION ERROR
     Dosage: 1.5 ML;X1;IART
     Route: 014

REACTIONS (7)
  - GRAND MAL CONVULSION [None]
  - DEPRESSED LEVEL OF CONSCIOUSNESS [None]
  - NAUSEA [None]
  - LIP INJURY [None]
  - MALAISE [None]
  - MYALGIA [None]
  - NECK PAIN [None]
